FAERS Safety Report 16146414 (Version 2)
Quarter: 2019Q2

REPORT INFORMATION
  Report Type: Spontaneous
  Country: ES (occurrence: ES)
  Receive Date: 20190402
  Receipt Date: 20190429
  Transmission Date: 20190711
  Serious: Yes (Hospitalization)
  Sender: FDA-Public Use
  Company Number: ES-BAUSCH-BL-2019-009268

PATIENT
  Age: 83 Year
  Sex: Female

DRUGS (2)
  1. ACENOCOUMAROL [Suspect]
     Active Substance: ACENOCOUMAROL
     Indication: ANTICOAGULANT THERAPY
     Route: 048
  2. NITROGLYCERIN. [Suspect]
     Active Substance: NITROGLYCERIN
     Indication: PRODUCT USED FOR UNKNOWN INDICATION
     Route: 062

REACTIONS (7)
  - Cough [Unknown]
  - Abdominal pain [Unknown]
  - Respiratory failure [Unknown]
  - International normalised ratio increased [Unknown]
  - Abdominal wall haematoma [Unknown]
  - Haematoma [Unknown]
  - Respiratory tract infection [Unknown]
